FAERS Safety Report 25876525 (Version 1)
Quarter: 2025Q4

REPORT INFORMATION
  Report Type: Spontaneous
  Country: EG (occurrence: EG)
  Receive Date: 20251003
  Receipt Date: 20251003
  Transmission Date: 20260117
  Serious: Yes (Hospitalization, Other)
  Sender: ZHEJIANG XIANJU PHARMACEUTICAL CO., LTD.
  Company Number: EG-Hisun Pharmaceuticals USA Inc.-000732

PATIENT
  Age: 27 Year
  Sex: Female
  Weight: 52 kg

DRUGS (2)
  1. PREDNISOLONE [Suspect]
     Active Substance: PREDNISOLONE
     Indication: Weight decreased
     Route: 048
  2. PREDNISOLONE [Suspect]
     Active Substance: PREDNISOLONE
     Indication: Weight decreased
     Route: 048

REACTIONS (4)
  - Ulcerative keratitis [Unknown]
  - Adrenal insufficiency [Unknown]
  - Steroid withdrawal syndrome [Unknown]
  - Drug abuse [Unknown]
